FAERS Safety Report 5449276-2 (Version None)
Quarter: 2007Q3

REPORT INFORMATION
  Report Type: 
  Country: None (occurrence: None)
  Receive Date: 20070907
  Receipt Date: 20070905
  Transmission Date: 20080115
  Serious: Yes (Death, Hospitalization)
  Sender: FDA-Public Use
  Company Number: 510-5-2004-30877

PATIENT
  Sex: Female
  Weight: 44 kg

DRUGS (18)
  1. LIDOCAINE [Suspect]
     Indication: POST HERPETIC NEURALGIA
     Dosage: 3 PATCHES A DAY
     Dates: start: 20031216, end: 20051215
  2. CARBAMAZEPINE (1997 - ) [Concomitant]
  3. FUROSEMIDE (1997-) [Concomitant]
  4. PREDNISOLONE (1985 ~) [Concomitant]
  5. TEMAZEPAME [Concomitant]
  6. FOSAMAX [Concomitant]
  7. MS-CONTIN (2002 ~ ) [Concomitant]
  8. PARACETAMOL WITH CODEINE (2002 ~ ) [Concomitant]
  9. PARACETAMOL (2002 ~ ) [Concomitant]
  10. EMCOR (2/7/04 ~ ) [Concomitant]
  11. AMOXICILLIN SODIUM W/CLAVULANATE (12/19/03 ~ 12/26/03) [Concomitant]
  12. PREDNISONE (12/19/03 ~ 12/26/03) [Concomitant]
  13. AZITHROMYCIN (7/26/03 ~ 7/28/03) [Concomitant]
  14. PAMIDRONIC ACID (6/21/04) [Concomitant]
  15. DALTEPARIN (11/2/04 ~ 11/15/04) [Concomitant]
  16. GABAPENTIN (12/28/04 ~ 12/31/04) [Concomitant]
  17. OMEPRAZOLE (1/13/05 ~ 1/26/05) [Concomitant]
  18. DURAGESIC,OXYGEN [Concomitant]

REACTIONS (21)
  - ARRHYTHMIA [None]
  - BRONCHITIS [None]
  - CARDIAC DISORDER [None]
  - CARDIAC FAILURE [None]
  - CARDIOMEGALY [None]
  - DRUG INEFFECTIVE [None]
  - ERYSIPELAS [None]
  - GAIT DISTURBANCE [None]
  - GENERAL PHYSICAL HEALTH DETERIORATION [None]
  - HAEMATOMA [None]
  - INSOMNIA [None]
  - LIMB INJURY [None]
  - LUNG DISORDER [None]
  - LUNG INFILTRATION [None]
  - NECROSIS [None]
  - OEDEMA PERIPHERAL [None]
  - PAIN [None]
  - PNEUMONIA [None]
  - PULMONARY OEDEMA [None]
  - SCAR [None]
  - SEPSIS [None]
